FAERS Safety Report 5104034-3 (Version None)
Quarter: 2006Q3

REPORT INFORMATION
  Report Type: 
  Country: None (occurrence: None)
  Receive Date: 20060911
  Receipt Date: 20060830
  Transmission Date: 20061208
  Serious: Yes (Death, Hospitalization, Other)
  Sender: FDA-Public Use
  Company Number: 2006091521

PATIENT
  Age: 72 Year
  Sex: Male
  Weight: 42 kg

DRUGS (8)
  1. VFEND [Suspect]
     Indication: FUNGAL INFECTION
     Dosage: 300 MG (150 MD, 2 IN 1 D), ORAL
     Route: 048
     Dates: start: 20060705, end: 20060721
  2. DEXTROMETHORPHAN HYDROBROMIDE [Concomitant]
  3. MUCODYNE                     (CARBOCISTEINE) [Concomitant]
  4. URSO 250 [Concomitant]
  5. CLARITHROMYCIN [Concomitant]
  6. FLIVAS               (NAFTOPIDIL) [Concomitant]
  7. AVISHOT                  (NAFTOPIDIL) [Concomitant]
  8. MAGNESIUM OXIDE                 (MAGNESIUM OXIDE) [Concomitant]

REACTIONS (7)
  - ALANINE AMINOTRANSFERASE INCREASED [None]
  - ASPARTATE AMINOTRANSFERASE INCREASED [None]
  - DELIRIUM [None]
  - DIZZINESS [None]
  - DYSPHAGIA [None]
  - LIVER DISORDER [None]
  - SEPSIS [None]
